FAERS Safety Report 25875489 (Version 1)
Quarter: 2025Q4

REPORT INFORMATION
  Report Type: Spontaneous
  Country: US (occurrence: US)
  Receive Date: 20251003
  Receipt Date: 20251003
  Transmission Date: 20260119
  Serious: No
  Sender: ELI LILLY AND COMPANY
  Company Number: US-ELI_LILLY_AND_COMPANY-US202509020338

PATIENT
  Age: 68 Year
  Sex: Female

DRUGS (3)
  1. ZEPBOUND [Suspect]
     Active Substance: TIRZEPATIDE
     Indication: Weight control
     Dosage: 2.5 MG, WEEKLY (1/W)
     Route: 058
     Dates: start: 202410
  2. ZEPBOUND [Suspect]
     Active Substance: TIRZEPATIDE
     Indication: Inflammation
     Dosage: 5 MG, WEEKLY (1/W)
     Route: 058
     Dates: start: 20250906, end: 20250913
  3. D3 50 [Concomitant]
     Indication: Vitamin D decreased
     Dosage: 50000 INTERNATIONAL UNIT, WEEKLY (1/W)

REACTIONS (5)
  - Weight increased [Unknown]
  - Insomnia [Unknown]
  - Fatigue [Not Recovered/Not Resolved]
  - Nausea [Unknown]
  - Eructation [Unknown]

NARRATIVE: CASE EVENT DATE: 20250901
